FAERS Safety Report 11868228 (Version 1)
Quarter: 2015Q4

REPORT INFORMATION
  Report Type: Spontaneous
  Country: GB (occurrence: GB)
  Receive Date: 20151224
  Receipt Date: 20151224
  Transmission Date: 20160305
  Serious: Yes (Other)
  Sender: FDA-Public Use
  Company Number: GB-ACTAVISPR-2015-28344

PATIENT
  Sex: Male

DRUGS (1)
  1. ROPINIROLE (UNKNOWN) [Suspect]
     Active Substance: ROPINIROLE
     Indication: PRODUCT USED FOR UNKNOWN INDICATION
     Dosage: 4 DF, UNKNOWN
     Route: 065

REACTIONS (1)
  - Hallucination [Unknown]
